FAERS Safety Report 4501957-0 (Version None)
Quarter: 2004Q4

REPORT INFORMATION
  Report Type: 
  Country: None (occurrence: None)
  Receive Date: 20041115
  Receipt Date: 20041115
  Transmission Date: 20050328
  Serious: Yes (Other)
  Sender: FDA-Public Use
  Company Number: None

PATIENT
  Age: 1 Year
  Sex: Female
  Weight: 117.4816 kg

DRUGS (1)
  1. EFFEXOR [Suspect]
     Indication: POSTPARTUM DEPRESSION
     Dosage: 150 MG 1 ORAL
     Route: 048
     Dates: start: 20030601, end: 20040804

REACTIONS (8)
  - ACTIVITIES OF DAILY LIVING IMPAIRED [None]
  - AGGRESSION [None]
  - DEPRESSION [None]
  - HEADACHE [None]
  - HOSTILITY [None]
  - MOOD ALTERED [None]
  - NAUSEA [None]
  - NERVOUS SYSTEM DISORDER [None]
